FAERS Safety Report 25737551 (Version 1)
Quarter: 2025Q3

REPORT INFORMATION
  Report Type: Report from Study
  Country: US (occurrence: US)
  Receive Date: 20250828
  Receipt Date: 20250828
  Transmission Date: 20251020
  Serious: Yes (Life-Threatening, Hospitalization, Other)
  Sender: ABBVIE
  Company Number: US-ABBVIE-6432438

PATIENT
  Sex: Male

DRUGS (1)
  1. VRAYLAR [Suspect]
     Active Substance: CARIPRAZINE
     Indication: Bipolar I disorder
     Dosage: FREQUENCY: 4.5 MG ONE IN AM/ TOOK FOR YEARS
     Route: 048

REACTIONS (5)
  - Cardiac arrest [Unknown]
  - Oedema peripheral [Unknown]
  - Swelling [Unknown]
  - Confusional state [Unknown]
  - Agitation [Unknown]
